FAERS Safety Report 11572223 (Version 1)
Quarter: 2015Q3

REPORT INFORMATION
  Report Type: Spontaneous
  Country: US (occurrence: US)
  Receive Date: 20150929
  Receipt Date: 20150929
  Transmission Date: 20151125
  Serious: Yes (Other)
  Sender: FDA-Public Use
  Company Number: PHHY2015US116245

PATIENT
  Age: 89 Year
  Sex: Male

DRUGS (3)
  1. TAZAROTENE [Suspect]
     Active Substance: TAZAROTENE
     Indication: METASTATIC MALIGNANT MELANOMA
     Dosage: 0.1 %, QD
     Route: 061
  2. IMIQUIMOD. [Suspect]
     Active Substance: IMIQUIMOD
     Indication: METASTATIC MALIGNANT MELANOMA
     Dosage: UNK UNK, QD
     Route: 061
  3. INTERLEUKIN-2 [Suspect]
     Active Substance: ALDESLEUKIN
     Indication: METASTATIC MALIGNANT MELANOMA
     Dosage: 7 MIU FOR 4 WEEKS
     Route: 026
     Dates: start: 201111

REACTIONS (3)
  - Dyspnoea [Unknown]
  - Metastasis [Unknown]
  - Hypotension [Unknown]
